FAERS Safety Report 4319232-6 (Version None)
Quarter: 2004Q1

REPORT INFORMATION
  Report Type: 
  Country: None (occurrence: None)
  Receive Date: 20040316
  Receipt Date: 20040308
  Transmission Date: 20041129
  Serious: Yes (Hospitalization)
  Sender: FDA-Public Use
  Company Number: 04P-167-0252827

PATIENT
  Sex: Female

DRUGS (8)
  1. MERIDIA [Suspect]
     Indication: OBESITY
     Dosage: PER ORAL
     Route: 048
     Dates: start: 20020901
  2. FLUOXETINE [Suspect]
     Indication: DEPRESSION
     Dosage: 40 MG, 1 IN 1 D, PER ORAL
     Route: 048
     Dates: start: 20020901
  3. ASPIRIN [Concomitant]
  4. GTN SPRAY [Concomitant]
  5. DILTIAZEM HYDROCHLORIDE [Concomitant]
  6. ATORVASTATIN [Concomitant]
  7. PROPRANOLOL [Concomitant]
  8. ISOSORBIDE MONONITRATE [Concomitant]

REACTIONS (3)
  - DELUSION [None]
  - PSYCHOTIC DISORDER [None]
  - SELF-MEDICATION [None]
